FAERS Safety Report 5287741-1 (Version None)
Quarter: 2007Q2

REPORT INFORMATION
  Report Type: 
  Country: None (occurrence: None)
  Receive Date: 20070402
  Receipt Date: 20070402
  Transmission Date: 20071010
  Serious: Yes (Hospitalization)
  Sender: FDA-Public Use
  Company Number: None

PATIENT
  Sex: Female
  Weight: 41.6 kg

DRUGS (1)
  1. VALPROIC ACID [Suspect]
     Dosage: 13950 MG

REACTIONS (23)
  - ABDOMINAL DISTENSION [None]
  - AGONAL DEATH STRUGGLE [None]
  - ATELECTASIS [None]
  - BLOOD CALCIUM DECREASED [None]
  - BLOOD FIBRINOGEN DECREASED [None]
  - BLOOD GLUCOSE INCREASED [None]
  - BOWEL SOUNDS ABNORMAL [None]
  - COLLAPSE OF LUNG [None]
  - CREPITATIONS [None]
  - FIBRIN D DIMER DECREASED [None]
  - HAEMATOCRIT DECREASED [None]
  - HAEMOTHORAX [None]
  - HYPOTENSION [None]
  - LABORATORY TEST ABNORMAL [None]
  - NEUTROPHIL COUNT INCREASED [None]
  - PLEURAL EFFUSION [None]
  - PRESYNCOPE [None]
  - PROTHROMBIN TIME PROLONGED [None]
  - PYREXIA [None]
  - RESPIRATORY FAILURE [None]
  - RHONCHI [None]
  - TUMOUR HAEMORRHAGE [None]
  - WHITE BLOOD CELL COUNT INCREASED [None]
